FAERS Safety Report 7551807-3 (Version None)
Quarter: 2011Q2

REPORT INFORMATION
  Report Type: 
  Country: None (occurrence: None)
  Receive Date: 20110616
  Receipt Date: 20110608
  Transmission Date: 20111010
  Serious: Yes (Other)
  Sender: FDA-Public Use
  Company Number: US-BAXTER-2011BH018792

PATIENT
  Age: 49 Year
  Sex: Male
  Weight: 100 kg

DRUGS (3)
  1. CHLORPROMAZINE [Suspect]
     Indication: HICCUPS
     Route: 042
     Dates: start: 20110603, end: 20110604
  2. CHLORPROMAZINE [Suspect]
     Indication: HICCUPS
     Route: 048
     Dates: start: 20110604, end: 20110604
  3. DILAUDID [Concomitant]
     Indication: PRODUCT USED FOR UNKNOWN INDICATION
     Route: 065

REACTIONS (7)
  - INJECTION SITE HAEMORRHAGE [None]
  - SYNCOPE [None]
  - CONFUSIONAL STATE [None]
  - FALL [None]
  - DRUG INEFFECTIVE [None]
  - LOSS OF CONSCIOUSNESS [None]
  - ASTHENIA [None]
